FAERS Safety Report 4504974-X (Version None)
Quarter: 2005Q1

REPORT INFORMATION
  Report Type: 
  Country: None (occurrence: None)
  Receive Date: 20041015
  Receipt Date: 20031218
  Transmission Date: 20050727
  Serious: Yes (Other)
  Sender: FDA-Public Use
  Company Number: 2003125937

PATIENT
  Age: 39 Year
  Sex: Male
  Weight: 90.7194 kg

DRUGS (3)
  1. NEURONTIN [Suspect]
     Indication: ANXIETY
     Dosage: 900 MG
     Dates: start: 20031001
  2. MODAFINIL [Concomitant]
  3. VITAMINS (VITAMINS) [Concomitant]

REACTIONS (3)
  - DEPRESSION [None]
  - SOMNOLENCE [None]
  - SUICIDAL IDEATION [None]
